FAERS Safety Report 11264222 (Version 2)
Quarter: 2015Q3

REPORT INFORMATION
  Report Type: Spontaneous
  Country: JP (occurrence: JP)
  Receive Date: 20150713
  Receipt Date: 20150805
  Transmission Date: 20151125
  Serious: Yes (Life-Threatening, Other)
  Sender: FDA-Public Use
  Company Number: JP-TAKEDA-2015TJP009538

PATIENT
  Age: 83 Year
  Sex: Female
  Weight: 51.2 kg

DRUGS (12)
  1. DIART [Concomitant]
     Active Substance: AZOSEMIDE
     Indication: CARDIAC FAILURE
     Dosage: 60 MG, QD
     Route: 048
     Dates: start: 20070405, end: 20140226
  2. SENNA [Concomitant]
     Active Substance: SENNA LEAF\SENNOSIDES\SENNOSIDES A AND B
     Indication: CONSTIPATION
     Dosage: 1 G, BID
     Route: 048
     Dates: start: 20110223, end: 20140226
  3. MAGNESIUM OXIDE. [Concomitant]
     Active Substance: MAGNESIUM OXIDE
     Indication: CONSTIPATION
     Dosage: 1 G, BID
     Route: 048
     Dates: start: 20070405, end: 20150319
  4. ADALAT [Interacting]
     Active Substance: NIFEDIPINE
     Indication: HYPERTENSION
     Dosage: 20 MG, BID
     Route: 048
     Dates: start: 20070405, end: 20140226
  5. AZILVA [Concomitant]
     Active Substance: AZILSARTAN KAMEDOXOMIL
     Indication: HYPERTENSION
     Dosage: 20 MG, QD
     Route: 048
     Dates: start: 20131225, end: 20140226
  6. LIPITOR [Concomitant]
     Active Substance: ATORVASTATIN CALCIUM
     Indication: DYSLIPIDAEMIA
     Dosage: 10 MG, QD
     Route: 048
     Dates: start: 20070405, end: 20140226
  7. SEPAZON [Concomitant]
     Active Substance: CLOXAZOLAM
     Indication: DEPRESSION
     Dosage: 1 DF, QD
     Route: 048
     Dates: start: 20070115
  8. PANTOSIN [Concomitant]
     Active Substance: PANTETHINE
     Indication: CONSTIPATION
     Dosage: 1 G, BID
     Route: 048
     Dates: start: 20070405
  9. ALDACTONE-A [Concomitant]
     Active Substance: SPIRONOLACTONE
     Indication: CARDIAC FAILURE
     Dosage: 25 MG, QD
     Route: 048
     Dates: start: 20080625, end: 20140226
  10. TRYPTANOL                          /00002202/ [Concomitant]
     Active Substance: AMITRIPTYLINE
     Indication: DEPRESSION
     Dosage: 50 MG, QD
     Route: 048
     Dates: start: 20070115
  11. VEMAS [Concomitant]
     Indication: CONSTIPATION
     Dosage: 4 DF, QD
     Route: 048
     Dates: start: 20110518
  12. LANSAP [Suspect]
     Active Substance: AMOXICILLIN\CLARITHROMYCIN\LANSOPRAZOLE
     Indication: HELICOBACTER INFECTION
     Dosage: 0.5 DF, BID
     Route: 048
     Dates: start: 20140220, end: 20140226

REACTIONS (4)
  - Bradycardia [Recovered/Resolved]
  - Drug interaction [Recovered/Resolved]
  - Renal failure [Recovered/Resolved]
  - Cardiac failure congestive [Recovered/Resolved]

NARRATIVE: CASE EVENT DATE: 20140227
